FAERS Safety Report 4652924-8 (Version None)
Quarter: 2005Q2

REPORT INFORMATION
  Report Type: 
  Country: None (occurrence: None)
  Receive Date: 20050503
  Receipt Date: 20040524
  Transmission Date: 20051028
  Serious: Yes (Other)
  Sender: FDA-Public Use
  Company Number: 200410060BNE

PATIENT
  Age: 46 Year
  Sex: Female
  Weight: 81.1939 kg

DRUGS (3)
  1. CANESTEN 500MG PESSARY (CLOTRIMAZOLE) [Suspect]
     Dosage: X00MG, TOTAL DAILY, VAGINAL
     Route: 067
     Dates: start: 20040123
  2. COZAAR [Concomitant]
  3. LASIX [Concomitant]

REACTIONS (8)
  - BLOOD PRESSURE INCREASED [None]
  - DYSPNOEA [None]
  - HEART RATE INCREASED [None]
  - PHARYNGEAL OEDEMA [None]
  - PHARYNGOLARYNGEAL PAIN [None]
  - PRURITUS [None]
  - PYREXIA [None]
  - URTICARIA [None]
